FAERS Safety Report 7067567-9 (Version None)
Quarter: 2010Q4

REPORT INFORMATION
  Report Type: 
  Country: None (occurrence: None)
  Receive Date: 20101028
  Receipt Date: 20101014
  Transmission Date: 20110411
  Serious: Yes (Hospitalization)
  Sender: FDA-Public Use
  Company Number: FR-CELGENEUS-056-C5013-10101444

PATIENT
  Sex: Male
  Weight: 93 kg

DRUGS (4)
  1. CC-5013 [Suspect]
     Indication: MULTIPLE MYELOMA
     Route: 048
     Dates: start: 20090922
  2. CC-5013 [Suspect]
     Route: 048
     Dates: start: 20100923, end: 20101013
  3. DEXAMETHASONE [Suspect]
     Indication: MULTIPLE MYELOMA
     Route: 065
     Dates: start: 20090922
  4. DEXAMETHASONE [Suspect]
     Route: 065
     Dates: start: 20100923, end: 20101013

REACTIONS (1)
  - HEMIPARESIS [None]
